FAERS Safety Report 24066430 (Version 4)
Quarter: 2025Q1

REPORT INFORMATION
  Report Type: Report from Study
  Country: CO (occurrence: CO)
  Receive Date: 20240709
  Receipt Date: 20250124
  Transmission Date: 20250409
  Serious: Yes (Hospitalization, Other)
  Sender: TAKEDA
  Company Number: CO-TAKEDA-2022TUS030813

PATIENT
  Age: 24 Year
  Sex: Male
  Weight: 72 kg

DRUGS (2)
  1. VEDOLIZUMAB [Suspect]
     Active Substance: VEDOLIZUMAB
     Indication: Colitis ulcerative
  2. VEDOLIZUMAB [Suspect]
     Active Substance: VEDOLIZUMAB
     Dosage: 300 MILLIGRAM, Q6WEEKS

REACTIONS (7)
  - Colitis ulcerative [Unknown]
  - Colitis [Recovering/Resolving]
  - Weight decreased [Unknown]
  - Drug ineffective [Unknown]
  - Off label use [Unknown]
  - Product availability issue [Unknown]
  - Treatment noncompliance [Unknown]

NARRATIVE: CASE EVENT DATE: 20220424
